FAERS Safety Report 22635143 (Version 1)
Quarter: 2023Q2

REPORT INFORMATION
  Report Type: Report from Study
  Country: IT (occurrence: IT)
  Receive Date: 20230623
  Receipt Date: 20230623
  Transmission Date: 20230721
  Serious: Yes (Hospitalization, Other)
  Sender: FDA-Public Use
  Company Number: None

PATIENT
  Age: 48 Year
  Sex: Female

DRUGS (10)
  1. IOPAMIRO [Suspect]
     Active Substance: IOPAMIDOL
     Indication: Investigation
     Dosage: 70 ML, SINGLE
     Route: 042
     Dates: start: 20220809, end: 20220809
  2. NIFEDIPINE [Concomitant]
     Active Substance: NIFEDIPINE
     Dosage: 60 MG
     Route: 048
  3. OMEPRAZOLE SODIUM [Concomitant]
     Active Substance: OMEPRAZOLE SODIUM
     Dosage: DOSAGGIO: 40 UNITA DI MISURA: MILLIGRAMMI VIA SOMMINISTRAZIONE: ORALE
     Route: 048
  4. LEVOTHYROXINE SODIUM [Concomitant]
     Active Substance: LEVOTHYROXINE SODIUM
     Indication: Hypothyroidism
     Dosage: 1 DF
     Route: 048
  5. LEVOTHYROXINE SODIUM [Concomitant]
     Active Substance: LEVOTHYROXINE SODIUM
     Dosage: 1 DF
     Route: 048
  6. PATROL [Concomitant]
     Active Substance: ACETAMINOPHEN\TRAMADOL HYDROCHLORIDE
     Indication: Pain
     Dosage: 1 DF
     Route: 048
  7. LASIX [Concomitant]
     Active Substance: FUROSEMIDE
     Indication: Chronic kidney disease
     Dosage: 500 MG
  8. ASPIRIN [Concomitant]
     Active Substance: ASPIRIN
     Dosage: 100 MG
     Route: 048
  9. ATORVASTATIN [Concomitant]
     Active Substance: ATORVASTATIN
     Indication: Dyslipidaemia
     Dosage: 10 MG
     Route: 048
  10. BISOPROLOL [Concomitant]
     Active Substance: BISOPROLOL
     Dosage: 2.5 MG
     Route: 048

REACTIONS (3)
  - Sialoadenitis [Recovered/Resolved]
  - Pain [Recovered/Resolved]
  - Swelling [Recovered/Resolved]

NARRATIVE: CASE EVENT DATE: 20220810
